FAERS Safety Report 5353980-4 (Version None)
Quarter: 2007Q2

REPORT INFORMATION
  Report Type: 
  Country: None (occurrence: None)
  Receive Date: 20070608
  Receipt Date: 20070608
  Transmission Date: 20071010
  Serious: Yes (Life-Threatening, Hospitalization, Disabling)
  Sender: FDA-Public Use
  Company Number: None

PATIENT
  Age: 82 Year
  Sex: Male
  Weight: 94.5 kg

DRUGS (10)
  1. METOPROLOL TARTRATE [Suspect]
     Indication: HEART RATE
     Dosage: 25MG BID PO
     Route: 048
     Dates: start: 20060305, end: 20060307
  2. METOPROLOL TARTRATE [Suspect]
     Indication: HYPERTENSION
     Dosage: 25MG BID PO
     Route: 048
     Dates: start: 20060305, end: 20060307
  3. AMIODARONE HCL [Concomitant]
  4. CLOPIDOREL [Concomitant]
  5. FELODIPINE [Concomitant]
  6. LEVOTHYROXINE SODIUM [Concomitant]
  7. LISINOPRIL AND HYDROCHLOROTHIAZIDE [Concomitant]
  8. .. [Concomitant]
  9. NITROGLYCERIN [Concomitant]
  10. SIMVASTATIN [Concomitant]

REACTIONS (3)
  - BRADYCARDIA [None]
  - CARDIAC ARREST [None]
  - DIZZINESS [None]
